FAERS Safety Report 24883491 (Version 3)
Quarter: 2025Q1

REPORT INFORMATION
  Report Type: Spontaneous
  Country: BR (occurrence: BR)
  Receive Date: 20250124
  Receipt Date: 20250206
  Transmission Date: 20250408
  Serious: Yes (Death, Hospitalization, Other)
  Sender: SANDOZ
  Company Number: BR-002147023-NVSC2025BR007033

PATIENT
  Sex: Female

DRUGS (16)
  1. APIXABAN [Suspect]
     Active Substance: APIXABAN
     Indication: Product used for unknown indication
     Route: 065
  2. LOSARTAN [Suspect]
     Active Substance: LOSARTAN
     Indication: Product used for unknown indication
     Route: 048
  3. ATORVASTATIN [Concomitant]
     Active Substance: ATORVASTATIN
     Indication: Cardiac disorder
     Route: 048
     Dates: start: 202412
  4. CLONAZEPAM [Concomitant]
     Active Substance: CLONAZEPAM
     Indication: Product used for unknown indication
     Route: 048
  5. BISOPROLOL FUMARATE [Concomitant]
     Active Substance: BISOPROLOL FUMARATE
     Indication: Cardiac disorder
     Route: 048
  6. PHENOBARBITAL [Concomitant]
     Active Substance: PHENOBARBITAL
     Indication: Cardiac disorder
     Dosage: 1 TABLET, QD (UNK; START DATE: 5 YEARS AGO)
     Route: 048
  7. PHENOBARBITAL [Concomitant]
     Active Substance: PHENOBARBITAL
     Dosage: 1 TABLET, QOD
     Route: 048
  8. PHENYTOIN SODIUM [Concomitant]
     Active Substance: PHENYTOIN SODIUM
     Indication: Cardiac disorder
     Route: 048
  9. LOSARTAN [Concomitant]
     Active Substance: LOSARTAN
     Indication: Product used for unknown indication
     Route: 048
  10. Pixaban [Concomitant]
     Indication: Product used for unknown indication
     Route: 048
  11. Pixaban [Concomitant]
     Route: 065
  12. ATORVASTATIN [Interacting]
     Active Substance: ATORVASTATIN
     Indication: Product used for unknown indication
     Route: 048
  13. ENTRESTO [Interacting]
     Active Substance: SACUBITRIL\VALSARTAN
     Indication: Arrhythmia
     Route: 065
  14. ENTRESTO [Interacting]
     Active Substance: SACUBITRIL\VALSARTAN
     Dosage: 200 MG, QD (1 TABLET OF 200  MG ONCE DAILY)
     Route: 065
     Dates: start: 202411, end: 20241220
  15. ENTRESTO [Interacting]
     Active Substance: SACUBITRIL\VALSARTAN
     Route: 065
     Dates: start: 20241220
  16. ENTRESTO [Interacting]
     Active Substance: SACUBITRIL\VALSARTAN
     Indication: Cardiac failure
     Route: 065

REACTIONS (24)
  - Cardiac failure [Fatal]
  - Haemothorax [Fatal]
  - COVID-19 [Fatal]
  - Cardiomyopathy [Fatal]
  - Pulmonary oedema [Fatal]
  - Dyspnoea [Fatal]
  - Chronic obstructive pulmonary disease [Fatal]
  - Cardiomegaly [Fatal]
  - Cardio-respiratory arrest [Fatal]
  - Anxiety [Fatal]
  - Cardiac disorder [Fatal]
  - Wrong technique in product usage process [Fatal]
  - Cardiovascular insufficiency [Fatal]
  - Cyanosis [Fatal]
  - Arrhythmia [Fatal]
  - Heart rate decreased [Fatal]
  - Aphasia [Recovered/Resolved with Sequelae]
  - Cerebrovascular accident [Recovered/Resolved with Sequelae]
  - Hand fracture [Recovered/Resolved with Sequelae]
  - Cerebrovascular accident [Recovered/Resolved with Sequelae]
  - Cerebrovascular accident [Recovered/Resolved with Sequelae]
  - Tremor [Not Recovered/Not Resolved]
  - Contraindicated product administered [Unknown]
  - Drug interaction [Not Recovered/Not Resolved]

NARRATIVE: CASE EVENT DATE: 20240101
